FAERS Safety Report 6804882-5 (Version None)
Quarter: 2010Q2

REPORT INFORMATION
  Report Type: 
  Country: None (occurrence: None)
  Receive Date: 20100628
  Receipt Date: 20070619
  Transmission Date: 20101027
  Serious: No
  Sender: FDA-Public Use
  Company Number: US-PFIZER INC-2007049910

PATIENT

DRUGS (6)
  1. GEODON [Suspect]
  2. ALL OTHER THERAPEUTIC PRODUCTS [Interacting]
  3. TOPAMAX [Concomitant]
  4. SORIATANE [Concomitant]
  5. ALL OTHER THERAPEUTIC PRODUCTS [Concomitant]
  6. DRUG, UNSPECIFIED [Concomitant]

REACTIONS (2)
  - ALOPECIA [None]
  - DRUG INTERACTION [None]
